FAERS Safety Report 17618850 (Version 2)
Quarter: 2020Q2

REPORT INFORMATION
  Report Type: Spontaneous
  Country: US (occurrence: US)
  Receive Date: 20200402
  Receipt Date: 20200617
  Transmission Date: 20200713
  Serious: No
  Sender: FDA-Public Use
  Company Number: US-BAUSCH-BL-2020-007889

PATIENT
  Age: 56 Year
  Sex: Female

DRUGS (2)
  1. LUMIFY [Suspect]
     Active Substance: BRIMONIDINE TARTRATE
     Dosage: EXPIRED PRODUCT
     Route: 047
     Dates: start: 202003
  2. LUMIFY [Suspect]
     Active Substance: BRIMONIDINE TARTRATE
     Indication: OCULAR HYPERAEMIA
     Dosage: AS NEEDED
     Route: 047
     Dates: start: 202003

REACTIONS (5)
  - Eye pruritus [Unknown]
  - Ocular hyperaemia [Unknown]
  - Expired product administered [Unknown]
  - Condition aggravated [Unknown]
  - Dry eye [Unknown]

NARRATIVE: CASE EVENT DATE: 202003
